FAERS Safety Report 5305521-5 (Version None)
Quarter: 2007Q2

REPORT INFORMATION
  Report Type: 
  Country: None (occurrence: None)
  Receive Date: 20070424
  Receipt Date: 20060501
  Transmission Date: 20071010
  Serious: No
  Sender: FDA-Public Use
  Company Number: S06-USA-01540-01

PATIENT
  Age: 70 Year
  Sex: Female

DRUGS (8)
  1. FLOVENT [Suspect]
     Indication: ASTHMA
     Dosage: 2PUFF PER DAY
     Route: 055
  2. AEROBID [Suspect]
     Indication: ASTHMA
     Dosage: 2PUFF PER DAY
     Route: 055
     Dates: start: 19960101, end: 20060410
  3. SYNTHROID [Concomitant]
  4. VYTORIN [Concomitant]
  5. PAXIL [Concomitant]
  6. KLONOPIN [Concomitant]
  7. ESTRACE [Concomitant]
  8. WYDASE [Concomitant]
     Dates: start: 20060301

REACTIONS (5)
  - CONDITION AGGRAVATED [None]
  - HAEMORRHAGE SUBCUTANEOUS [None]
  - IMPAIRED HEALING [None]
  - RASH [None]
  - WOUND [None]
